FAERS Safety Report 8026810-X (Version None)
Quarter: 2011Q4

REPORT INFORMATION
  Report Type: 
  Country: None (occurrence: None)
  Receive Date: 20111130
  Receipt Date: 20110908
  Transmission Date: 20120403
  Serious: Yes (Other)
  Sender: FDA-Public Use
  Company Number: US201109002289

PATIENT
  Age: 72 Year
  Sex: Female
  Weight: 68 kg

DRUGS (5)
  1. METFORMIN HCL [Concomitant]
  2. AMARYL [Concomitant]
  3. INSULIN [Concomitant]
  4. BYETTA [Suspect]
     Indication: TYPE 2 DIABETES MELLITUS
     Dosage: 5 UG, BID, SUBCUTANEOUS, 10  UG, BID, SUBCUTANEOUS
     Route: 058
     Dates: start: 20070501, end: 20070601
  5. BYETTA [Suspect]
     Indication: TYPE 2 DIABETES MELLITUS
     Dosage: 5 UG, BID, SUBCUTANEOUS, 10  UG, BID, SUBCUTANEOUS
     Route: 058
     Dates: start: 20070601, end: 20110401

REACTIONS (2)
  - OFF LABEL USE [None]
  - RENAL IMPAIRMENT [None]
